FAERS Safety Report 8030772-9 (Version None)
Quarter: 2012Q1

REPORT INFORMATION
  Report Type: 
  Country: None (occurrence: None)
  Receive Date: 20120109
  Receipt Date: 20120104
  Transmission Date: 20120608
  Serious: Yes (Other)
  Sender: FDA-Public Use
  Company Number: PHEH2012US000683

PATIENT
  Sex: Female

DRUGS (2)
  1. ACE INHIBITORS [Concomitant]
     Dosage: UNK UKN, UNK
  2. TEKTURNA [Suspect]
     Dosage: UNK UKN, UNK
     Dates: start: 20110301

REACTIONS (2)
  - CEREBROVASCULAR ACCIDENT [None]
  - CORONARY ARTERY DISEASE [None]
